FAERS Safety Report 5164082-4 (Version None)
Quarter: 2006Q4

REPORT INFORMATION
  Report Type: 
  Country: None (occurrence: None)
  Receive Date: 20061124
  Receipt Date: 20061109
  Transmission Date: 20070319
  Serious: Yes (Death)
  Sender: FDA-Public Use
  Company Number: 2006138273

PATIENT
  Age: 18 Year

DRUGS (3)
  1. ALPRAZOLAM [Suspect]
  2. ACETAMINOPHEN AND OXYCODONE HCL [Suspect]
  3. HYDROCODONE (HYDROCODONE) [Suspect]

REACTIONS (6)
  - CARDIAC ARREST [None]
  - DRUG ABUSER [None]
  - DRUG TOXICITY [None]
  - INCORRECT ROUTE OF DRUG ADMINISTRATION [None]
  - INTENTIONAL DRUG MISUSE [None]
  - RESPIRATORY ARREST [None]
